FAERS Safety Report 5420093-2 (Version None)
Quarter: 2007Q3

REPORT INFORMATION
  Report Type: 
  Country: None (occurrence: None)
  Receive Date: 20070820
  Receipt Date: 20070806
  Transmission Date: 20080115
  Serious: Yes (Other)
  Sender: FDA-Public Use
  Company Number: DE-SHR-DE-2007-030451

PATIENT
  Sex: Male

DRUGS (4)
  1. ULTRAVIST 370 [Suspect]
     Indication: CATHETERISATION CARDIAC
     Dosage: 50-60 ML, 1 DOSE
     Route: 013
     Dates: start: 20070301, end: 20070301
  2. ANTIHYPERTENSIVES [Concomitant]
  3. DIURETICS [Concomitant]
     Dosage: UNK, AS REQ'D
  4. SIOFOR [Concomitant]
     Dosage: .5 TAB(S), 1X/DAY

REACTIONS (4)
  - ABDOMINAL PAIN [None]
  - BLADDER DISORDER [None]
  - BLOOD URINE PRESENT [None]
  - RENAL DISORDER [None]
